FAERS Safety Report 17791642 (Version 1)
Quarter: 2020Q2

REPORT INFORMATION
  Report Type: Spontaneous
  Country: ES (occurrence: ES)
  Receive Date: 20200515
  Receipt Date: 20200515
  Transmission Date: 20200714
  Serious: Yes (Other)
  Sender: FDA-Public Use
  Company Number: NVSC2020ES131783

PATIENT
  Age: 74 Year
  Sex: Female

DRUGS (4)
  1. QUETIAPINE. [Interacting]
     Active Substance: QUETIAPINE
     Indication: DEPRESSION
     Dosage: 50 MG
     Route: 048
  2. VENLAFAXINE [Suspect]
     Active Substance: VENLAFAXINE HYDROCHLORIDE
     Indication: PRODUCT USED FOR UNKNOWN INDICATION
     Dosage: 300 MG
     Route: 065
  3. TRAMADOL. [Interacting]
     Active Substance: TRAMADOL
     Indication: BACK PAIN
     Dosage: UNK
     Route: 065
  4. LITHIUM. [Interacting]
     Active Substance: LITHIUM
     Indication: PRODUCT USED FOR UNKNOWN INDICATION
     Dosage: 600 MG
     Route: 065

REACTIONS (2)
  - Drug interaction [Unknown]
  - Serotonin syndrome [Unknown]
